FAERS Safety Report 10205090 (Version 1)
Quarter: 2014Q2

REPORT INFORMATION
  Report Type: Spontaneous
  Country: US (occurrence: None)
  Receive Date: 20140527
  Receipt Date: 20140527
  Transmission Date: 20141212
  Serious: Yes (Hospitalization)
  Sender: FDA-Public Use
  Company Number: None

PATIENT
  Age: 68 Year
  Sex: Male

DRUGS (8)
  1. IPILIMUMAB [Suspect]
     Indication: NEOPLASM MALIGNANT
     Dosage: UNKNOWN, UNKNOWN, IV ?
     Route: 042
     Dates: start: 20120614, end: 20120614
  2. DRONABINOL [Concomitant]
  3. HYDROCORTISONE [Concomitant]
  4. LANZOPRAZOLE [Concomitant]
  5. ONDANSERTRON HYDROCHLORIDE [Concomitant]
  6. POLYETHYLENE GLYCOL 3350 [Concomitant]
  7. PROCHLORPERAZINE [Concomitant]
  8. TRAMADOL [Concomitant]

REACTIONS (10)
  - Haemorrhoids [None]
  - Pain [None]
  - Chest pain [None]
  - Pruritus [None]
  - Rash macular [None]
  - Rash [None]
  - Rash [None]
  - Lymphadenopathy [None]
  - Febrile neutropenia [None]
  - Pancytopenia [None]
